FAERS Safety Report 14312944 (Version 1)
Quarter: 2017Q4

REPORT INFORMATION
  Report Type: Spontaneous
  Country: GB (occurrence: GB)
  Receive Date: 20171221
  Receipt Date: 20171221
  Transmission Date: 20180321
  Serious: Yes (Hospitalization)
  Sender: FDA-Public Use
  Company Number: GB-009507513-1712GBR008577

PATIENT
  Age: 31 Year
  Sex: Female
  Weight: 108 kg

DRUGS (3)
  1. SUGAMMADEX SODIUM [Suspect]
     Active Substance: SUGAMMADEX SODIUM
     Dosage: UNK
     Route: 013
     Dates: start: 20171128, end: 20171128
  2. NORIDAY [Concomitant]
     Active Substance: FERROUS FUMARATE\MESTRANOL\NORETHINDRONE
     Dosage: UNK
  3. SERTRALINE HYDROCHLORIDE. [Concomitant]
     Active Substance: SERTRALINE HYDROCHLORIDE
     Dosage: UNK

REACTIONS (1)
  - Generalised tonic-clonic seizure [Recovering/Resolving]

NARRATIVE: CASE EVENT DATE: 20171128
